FAERS Safety Report 9254360 (Version 1)
Quarter: 2013Q1

REPORT INFORMATION
  Report Type: Spontaneous
  Country: US (occurrence: None)
  Receive Date: 20121210
  Receipt Date: 20121210
  Transmission Date: 20140127
  Serious: No
  Sender: FDA-Public Use
  Company Number: 1209USA005826

PATIENT
  Sex: Female

DRUGS (1)
  1. ZIOPTAN [Suspect]
     Dosage: 2 GTT, HS, OPHTHALMIC
     Route: 047

REACTIONS (2)
  - Intercepted drug dispensing error [None]
  - No adverse event [None]
